FAERS Safety Report 24341043 (Version 1)
Quarter: 2024Q3

REPORT INFORMATION
  Report Type: Spontaneous
  Country: ES (occurrence: ES)
  Receive Date: 20240919
  Receipt Date: 20240919
  Transmission Date: 20241017
  Serious: Yes (Other)
  Sender: MAYNE
  Company Number: ES-MAYNE PHARMA-2024MYN000395

PATIENT

DRUGS (1)
  1. BIJUVA [Suspect]
     Active Substance: ESTRADIOL\PROGESTERONE
     Indication: Hot flush
     Dosage: 1 TABLET PER DAY
     Route: 065
     Dates: start: 202405, end: 202409

REACTIONS (4)
  - Abnormal menstrual clots [Recovered/Resolved]
  - Vaginal haemorrhage [Recovered/Resolved]
  - Vaginal haemorrhage [Recovered/Resolved]
  - Vaginal haemorrhage [Not Recovered/Not Resolved]

NARRATIVE: CASE EVENT DATE: 20240701
